FAERS Safety Report 18932665 (Version 1)
Quarter: 2021Q1

REPORT INFORMATION
  Report Type: Report from Study
  Country: CA (occurrence: CA)
  Receive Date: 20210224
  Receipt Date: 20210224
  Transmission Date: 20210420
  Serious: Yes (Other)
  Sender: FDA-Public Use
  Company Number: CA-ORION CORPORATION ORION PHARMA-21_00013280

PATIENT
  Age: 65 Year
  Sex: Male

DRUGS (14)
  1. METHOTREXATE (TRADE NAME UNKNOWN) [Suspect]
     Active Substance: METHOTREXATE
     Indication: PRODUCT USED FOR UNKNOWN INDICATION
     Route: 065
  2. COSENTYX [Suspect]
     Active Substance: SECUKINUMAB
     Route: 058
  3. HUMIRA [Concomitant]
     Active Substance: ADALIMUMAB
     Route: 065
  4. COSENTYX [Suspect]
     Active Substance: SECUKINUMAB
     Indication: PSORIASIS
     Route: 058
  5. COSENTYX [Suspect]
     Active Substance: SECUKINUMAB
     Indication: PSORIASIS
     Route: 058
  6. COSENTYX [Suspect]
     Active Substance: SECUKINUMAB
     Route: 058
  7. ANTHRALIN [Concomitant]
     Active Substance: ANTHRALIN
     Route: 065
  8. BETAMETHASONE DIPROPIONATE?CALCIPOTRIOL [Concomitant]
     Route: 065
  9. BETAMETHASONE DIPROPIONATE;?ALICYLIC ACID [Concomitant]
     Route: 065
  10. COSENTYX [Suspect]
     Active Substance: SECUKINUMAB
     Route: 058
  11. COSENTYX [Suspect]
     Active Substance: SECUKINUMAB
     Route: 058
  12. ACITRETIN. [Concomitant]
     Active Substance: ACITRETIN
     Route: 065
  13. BETAMETHASONE DIPROPIONATE?CALCIPOTRIOL [Concomitant]
     Route: 065
  14. TEGISON [Concomitant]
     Active Substance: ETRETINATE
     Route: 065

REACTIONS (7)
  - Pneumonia [Unknown]
  - Psoriasis [Unknown]
  - Inappropriate schedule of product administration [Unknown]
  - Pruritus [Unknown]
  - Emotional distress [Unknown]
  - Pain of skin [Unknown]
  - Incorrect dose administered [Unknown]
